FAERS Safety Report 9372561 (Version 2)
Quarter: 2013Q3

REPORT INFORMATION
  Report Type: Spontaneous
  Country: IN (occurrence: IN)
  Receive Date: 20130627
  Receipt Date: 20130703
  Transmission Date: 20140515
  Serious: Yes (Other)
  Sender: FDA-Public Use
  Company Number: IN-PFIZER INC-2013190529

PATIENT
  Age: 32 Year
  Sex: Female

DRUGS (5)
  1. ACETAZOLAMIDE [Suspect]
     Dosage: 250 MG, 3X/DAY
     Route: 048
  2. TOPIROL [Suspect]
     Indication: MIGRAINE PROPHYLAXIS
     Dosage: 25 MG, 2X/DAY
  3. CO-TRIMOXAZOLE [Suspect]
     Indication: PYREXIA
     Dosage: 800 MG/160 MG
  4. MIGRABETA [Concomitant]
     Indication: MIGRAINE
     Dosage: 20 MG, 2X/DAY
  5. RIZACT [Concomitant]
     Indication: MIGRAINE
     Dosage: 10 MG, 1X/DAY

REACTIONS (3)
  - Angle closure glaucoma [Recovered/Resolved]
  - Iridocyclitis [Recovered/Resolved]
  - Cross sensitivity reaction [Recovered/Resolved]
